FAERS Safety Report 22539073 (Version 1)
Quarter: 2023Q2

REPORT INFORMATION
  Report Type: Report from Study
  Country: US (occurrence: US)
  Receive Date: 20230609
  Receipt Date: 20230609
  Transmission Date: 20230722
  Serious: Yes (Hospitalization, Other)
  Sender: FDA-Public Use
  Company Number: US-JNJFOC-20230607404

PATIENT
  Age: 76 Year
  Sex: Female
  Weight: 72.64 kg

DRUGS (1)
  1. RIVAROXABAN [Suspect]
     Active Substance: RIVAROXABAN
     Indication: Pulmonary thrombosis
     Route: 048
     Dates: start: 2022, end: 20221201

REACTIONS (5)
  - Renal failure [Unknown]
  - Nocturnal dyspnoea [Recovering/Resolving]
  - Confusional state [Unknown]
  - Blood pressure decreased [Unknown]
  - Off label use [Unknown]

NARRATIVE: CASE EVENT DATE: 20220101
